FAERS Safety Report 8376357 (Version 2)
Quarter: 2013Q1

REPORT INFORMATION
  Report Type: Report from Study
  Country: US (occurrence: US)
  Receive Date: 20120129
  Receipt Date: 20130129
  Transmission Date: 20140127
  Serious: No
  Sender: FDA-Public Use
  Company Number: US-ABBOTT-11P-163-0883095-00

PATIENT
  Age: 53 Year
  Sex: Female

DRUGS (17)
  1. HUMIRA 40 MG/0.8 ML PEN [Suspect]
     Indication: PSORIASIS
     Dates: start: 20111209
  2. HUMIRA 40 MG/0.8 ML PEN [Suspect]
  3. HALDOL [Concomitant]
     Indication: SCHIZOPHRENIA
  4. DEPAKOTE [Concomitant]
     Indication: SCHIZOPHRENIA
  5. ATENOLOL [Concomitant]
     Indication: HYPERTENSION
     Dosage: DAILY
  6. GLIPIZIDE XL [Concomitant]
     Indication: DIABETES MELLITUS
     Dosage: DAILY
  7. FENOFIBRATE [Concomitant]
     Indication: PRODUCT USED FOR UNKNOWN INDICATION
     Dosage: AT NIGHT
  8. VESICARE [Concomitant]
     Indication: URINARY INCONTINENCE
  9. CRESTOR [Concomitant]
     Indication: BLOOD CHOLESTEROL INCREASED
     Dosage: AT NIGHT
  10. CITALOPRAM [Concomitant]
     Indication: DEPRESSION
  11. BENZTROPINE [Concomitant]
     Indication: ADVERSE DRUG REACTION
  12. FUROSEMIDE [Concomitant]
     Indication: OEDEMA PERIPHERAL
  13. POTASSIUM [Concomitant]
     Indication: PRODUCT USED FOR UNKNOWN INDICATION
  14. LISINOPRIL [Concomitant]
     Indication: HYPERTENSION
  15. RANITIDINE [Concomitant]
     Indication: PRODUCT USED FOR UNKNOWN INDICATION
  16. BABY ASPIRIN [Concomitant]
     Indication: PRODUCT USED FOR UNKNOWN INDICATION
  17. HYDROCODONE [Concomitant]
     Indication: PAIN

REACTIONS (1)
  - Drug ineffective [Recovering/Resolving]
